FAERS Safety Report 17200518 (Version 12)
Quarter: 2023Q4

REPORT INFORMATION
  Report Type: Spontaneous
  Country: GB (occurrence: GB)
  Receive Date: 20191226
  Receipt Date: 20231221
  Transmission Date: 20240109
  Serious: Yes (Life-Threatening, Hospitalization, Other)
  Sender: FDA-Public Use
  Company Number: GB-SA-2019SA335001

PATIENT
  Age: 79 Year
  Sex: Male
  Weight: 80 kg

DRUGS (17)
  1. AMLODIPINE [Suspect]
     Active Substance: AMLODIPINE BESYLATE
     Indication: Acute myocardial infarction
     Dosage: UNK (1 IN TOTAL)
     Route: 048
  2. BISOPROLOL [Suspect]
     Active Substance: BISOPROLOL\BISOPROLOL FUMARATE
     Indication: Acute myocardial infarction
     Dosage: UNK, 1 IN TOTAL
     Route: 048
  3. DOXAZOSIN [Suspect]
     Active Substance: DOXAZOSIN MESYLATE
     Indication: Acute myocardial infarction
     Dosage: UNK, 1 IN TOTAL
     Route: 048
  4. ISOSORBIDE MONONITRATE [Suspect]
     Active Substance: ISOSORBIDE MONONITRATE
     Indication: Acute myocardial infarction
     Dosage: UNK, 1 IN TOTAL
     Route: 048
  5. RAMIPRIL [Suspect]
     Active Substance: RAMIPRIL
     Indication: Acute myocardial infarction
     Dosage: UNK, 1 IN TOTAL, INGESTED
     Route: 048
  6. ASPIRIN [Suspect]
     Active Substance: ASPIRIN
     Indication: Acute myocardial infarction
     Dosage: UNK, 1 TOTAL
     Route: 048
  7. ACTRAPID [Suspect]
     Active Substance: INSULIN HUMAN
     Indication: Product used for unknown indication
     Dosage: 2 UNITS/KG/HOUR (I.E. 160 UNITS/HOUR IN THIS 80KG PATIENT
     Route: 065
  8. ASPIRIN [Suspect]
     Active Substance: ASPIRIN
     Indication: Acute myocardial infarction
     Dosage: UNK 1 IN TOTAL
     Route: 048
  9. ASPIRIN [Suspect]
     Active Substance: ASPIRIN
     Dosage: INGESTED
     Route: 048
  10. CALCIUM CHLORIDE [Suspect]
     Active Substance: CALCIUM CHLORIDE
     Indication: Product used for unknown indication
     Dosage: UNK
     Route: 065
  11. DIAZEPAM [Suspect]
     Active Substance: DIAZEPAM
     Indication: Acute myocardial infarction
     Dosage: UNK 1 IN TOTAL
     Route: 048
  12. DIAZEPAM [Suspect]
     Active Substance: DIAZEPAM
     Dosage: INGESTED
     Route: 048
  13. NOREPINEPHRINE [Suspect]
     Active Substance: NOREPINEPHRINE
     Indication: Cardiogenic shock
     Dosage: 0.59 MICROGRAM/KILOGRAM, EVENRY HOUR
     Route: 042
  14. GLUCAGON [Suspect]
     Active Substance: GLUCAGON\GLUCAGON HYDROCHLORIDE\WATER
     Indication: Product used for unknown indication
     Dosage: 5 MILLIGRAM
     Route: 065
  15. INSULIN GLARGINE [Suspect]
     Active Substance: INSULIN GLARGINE
     Indication: Cardiogenic shock
     Dosage: UNK (UNK INFUSION  IV INFUSION OF INSULIN AT 2 UNITS/KG/HOUR. UPON.)
     Route: 042
  16. DEXTROSE [Concomitant]
     Active Substance: DEXTROSE\DEXTROSE MONOHYDRATE
     Indication: Product used for unknown indication
     Dosage: 100 MILLIGRAM
     Route: 042
  17. SODIUM CHLORIDE [Concomitant]
     Active Substance: SODIUM CHLORIDE
     Indication: Product used for unknown indication
     Dosage: 100 MILLIGRAM
     Route: 042

REACTIONS (16)
  - Cardiogenic shock [Recovered/Resolved]
  - Shock [Recovered/Resolved]
  - Distributive shock [Recovering/Resolving]
  - Intentional overdose [Recovered/Resolved]
  - Condition aggravated [Recovered/Resolved]
  - Hypotension [Recovered/Resolved]
  - Anuria [Recovered/Resolved]
  - Electrocardiogram QRS complex shortened [Recovered/Resolved]
  - Acute kidney injury [Recovered/Resolved]
  - Toxicity to various agents [Recovered/Resolved]
  - Blood creatinine increased [Recovered/Resolved]
  - Blood lactic acid abnormal [Recovered/Resolved]
  - pH body fluid abnormal [Recovered/Resolved]
  - Blood pressure abnormal [Recovered/Resolved]
  - Heart rate abnormal [Recovered/Resolved]
  - Sinus rhythm [Recovered/Resolved]
